FAERS Safety Report 4737448-1 (Version None)
Quarter: 2005Q3

REPORT INFORMATION
  Report Type: 
  Country: None (occurrence: None)
  Receive Date: 20050809
  Receipt Date: 20050729
  Transmission Date: 20060218
  Serious: Yes (Hospitalization)
  Sender: FDA-Public Use
  Company Number: CH-NOVOPROD-245934

PATIENT
  Age: 30 Year
  Sex: Female

DRUGS (5)
  1. ACTRAPID HM PENFILL [Suspect]
     Indication: ILL-DEFINED DISORDER
     Route: 042
     Dates: start: 20050401, end: 20050401
  2. FLOXYFRAL [Concomitant]
     Dosage: 100 MG, UNK
     Route: 048
  3. PREDNISONE [Concomitant]
     Dosage: 15 MG, UNK
     Route: 048
  4. CALCIMAGON-D3 [Concomitant]
     Route: 048
  5. ZOLPIDEM TARTRATE [Concomitant]
     Dosage: 5 UNK, UNK
     Route: 048

REACTIONS (5)
  - HYPOGLYCAEMIA [None]
  - HYPOKALAEMIA [None]
  - INCORRECT ROUTE OF DRUG ADMINISTRATION [None]
  - MEDICATION ERROR [None]
  - WRONG DRUG ADMINISTERED [None]
